FAERS Safety Report 6475791-9 (Version None)
Quarter: 2009Q4

REPORT INFORMATION
  Report Type: 
  Country: None (occurrence: None)
  Receive Date: 20091204
  Receipt Date: 20091124
  Transmission Date: 20100525
  Serious: Yes (Hospitalization, Other)
  Sender: FDA-Public Use
  Company Number: US-ELI_LILLY_AND_COMPANY-US200911006537

PATIENT
  Age: 47 Year
  Sex: Female

DRUGS (7)
  1. CYMBALTA [Suspect]
     Indication: MAJOR DEPRESSION
     Dosage: 60 MG, DAILY (1/D)
  2. PREDNISONE [Concomitant]
  3. IBUPROFEN [Concomitant]
  4. CLONAZEPAM [Concomitant]
  5. AMITRIPTYLINE [Concomitant]
  6. VICODIN [Concomitant]
  7. ALBUTEROL [Concomitant]
     Route: 055

REACTIONS (2)
  - DIVERTICULITIS [None]
  - RESPIRATORY FAILURE [None]
